FAERS Safety Report 9437792 (Version 1)
Quarter: 2013Q3

REPORT INFORMATION
  Report Type: Spontaneous
  Country: US (occurrence: None)
  Receive Date: 20130802
  Receipt Date: 20130802
  Transmission Date: 20140515
  Serious: Yes (Death)
  Sender: FDA-Public Use
  Company Number: None

PATIENT
  Age: 64 Year
  Sex: Male

DRUGS (9)
  1. XTANDI [Suspect]
     Indication: PROSTATE CANCER
     Route: 048
     Dates: start: 20130221, end: 20130615
  2. PREDNISONE [Concomitant]
  3. MIDODRINE [Concomitant]
  4. MORPHINE [Concomitant]
  5. TERAZOSIN [Concomitant]
  6. LIDODERM [Concomitant]
  7. DEXAMETHASONE [Concomitant]
  8. GENERLAC [Concomitant]
  9. PEG [Concomitant]

REACTIONS (1)
  - Death [None]
